FAERS Safety Report 10733040 (Version 3)
Quarter: 2018Q3

REPORT INFORMATION
  Report Type: Report from Study
  Country: None (occurrence: JP)
  Receive Date: 20150123
  Receipt Date: 20180815
  Transmission Date: 20181010
  Serious: Yes (Hospitalization, Other)
  Sender: FDA-Public Use
  Company Number: JP-ABBVIE-15P-087-1337108-00

PATIENT
  Age: 36 Year
  Sex: Female

DRUGS (32)
  1. BIOLACTIS [Concomitant]
     Active Substance: LACTOBACILLUS CASEI
     Indication: CYSTIC FIBROSIS PANCREATIC
     Dosage: 3G/DAY
     Route: 048
     Dates: start: 20120311
  2. ITRIZOLE [Concomitant]
     Active Substance: ITRACONAZOLE
     Indication: ANTIFUNGAL PROPHYLAXIS
     Dosage: 50MG/DAY
     Route: 048
     Dates: start: 20150213
  3. GRACEPTOR [Suspect]
     Active Substance: TACROLIMUS
     Indication: UNEVALUABLE THERAPY
     Dosage: 3 MG, QD
     Route: 048
     Dates: start: 20150115
  4. PREDONINE [Concomitant]
     Active Substance: PREDNISOLONE
     Indication: PRODUCT USED FOR UNKNOWN INDICATION
     Route: 048
     Dates: start: 2002
  5. PREDONINE [Concomitant]
     Active Substance: PREDNISOLONE
     Indication: UNEVALUABLE THERAPY
  6. SEPAMIT?R [Concomitant]
     Active Substance: NIFEDIPINE
     Indication: PRODUCT USED FOR UNKNOWN INDICATION
     Dosage: 4MG/DAY
     Route: 048
     Dates: start: 2002
  7. MEIACT [Concomitant]
     Active Substance: CEFDITOREN PIVOXIL
     Indication: PNEUMONIA
     Dosage: 300MG/DAY
     Route: 048
     Dates: start: 20130107, end: 20130108
  8. CEFON [Concomitant]
     Active Substance: CEFOPERAZONE SODIUM\SULBACTAM SODIUM
     Indication: CYSTIC FIBROSIS PANCREATIC
     Dosage: 4G/DAY
     Route: 065
     Dates: start: 20171012, end: 20171102
  9. NIFEDIPINE. [Concomitant]
     Active Substance: NIFEDIPINE
     Indication: HYPERTENSION
     Dosage: 40MG/DAY
     Route: 048
     Dates: start: 20171130
  10. LIPACREON [Suspect]
     Active Substance: PANCRELIPASE
     Dosage: 1350 MG, QD
     Route: 048
     Dates: start: 20171011
  11. GRACEPTOR [Suspect]
     Active Substance: TACROLIMUS
     Indication: PRODUCT USED FOR UNKNOWN INDICATION
     Route: 048
     Dates: start: 201010
  12. ZOVIRAX [Concomitant]
     Active Substance: ACYCLOVIR
     Indication: PRODUCT USED FOR UNKNOWN INDICATION
     Dosage: 200MG/DAY
     Route: 048
     Dates: start: 2002
  13. TOBI [Concomitant]
     Active Substance: TOBRAMYCIN
     Dosage: 2A/DAY
     Route: 055
     Dates: start: 20171214, end: 20180110
  14. TOBI [Concomitant]
     Active Substance: TOBRAMYCIN
     Dosage: 2A/DAY
     Route: 055
     Dates: start: 20180208, end: 20180307
  15. BONALON [Concomitant]
     Active Substance: ALENDRONATE SODIUM
     Indication: UNEVALUABLE THERAPY
     Dosage: 35MG/WEEK
     Route: 048
     Dates: start: 20171020
  16. MEROPEN [Concomitant]
     Active Substance: MEROPENEM
     Indication: C-REACTIVE PROTEIN INCREASED
     Dosage: 500MG/DAY
     Route: 065
     Dates: start: 20171128, end: 20171211
  17. CELLCEPT [Concomitant]
     Active Substance: MYCOPHENOLATE MOFETIL\MYCOPHENOLATE MOFETIL HYDROCHLORIDE
     Indication: PRODUCT USED FOR UNKNOWN INDICATION
     Route: 048
     Dates: start: 2002
  18. INAVIR [Concomitant]
     Indication: INFLUENZA
     Dosage: 2DF/DAY
     Route: 055
     Dates: start: 20130107, end: 20130107
  19. LIPACREON [Suspect]
     Active Substance: PANCRELIPASE
     Dosage: 1350 MG, QD
     Route: 048
     Dates: start: 20140214, end: 20170824
  20. CELLCEPT [Concomitant]
     Active Substance: MYCOPHENOLATE MOFETIL\MYCOPHENOLATE MOFETIL HYDROCHLORIDE
     Indication: UNEVALUABLE THERAPY
     Dosage: 500MG/DAY
     Route: 048
     Dates: start: 20101013
  21. BIOFERMIN R [Concomitant]
     Active Substance: BACILLUS SUBTILIS\LACTOBACILLUS ACIDOPHILUS\STREPTOCOCCUS FAECAIS
     Indication: CYSTIC FIBROSIS PANCREATIC
     Dosage: 3DF/DAY
     Route: 048
     Dates: start: 20120311
  22. TOBI [Concomitant]
     Active Substance: TOBRAMYCIN
     Indication: CYSTIC FIBROSIS PANCREATIC
     Dosage: 2A/DAY
     Route: 055
     Dates: start: 20171019, end: 20171115
  23. ATELEC [Concomitant]
     Active Substance: CILNIDIPINE
     Indication: HYPERTENSION
     Dosage: 10MG/DAY
     Route: 048
  24. DIFLUCAN [Concomitant]
     Active Substance: FLUCONAZOLE
     Indication: PRODUCT USED FOR UNKNOWN INDICATION
     Dosage: 100MG/DAY
     Route: 048
     Dates: start: 2002
  25. ZOVIRAX [Concomitant]
     Active Substance: ACYCLOVIR
     Indication: UNEVALUABLE THERAPY
  26. ANTIBIOTICS?RESISTANT LACTIC ACID BACTERIAE [Concomitant]
     Active Substance: UNSPECIFIED INGREDIENT
     Indication: PRODUCT USED FOR UNKNOWN INDICATION
     Route: 048
     Dates: start: 20120311
  27. TEMOCAPRIL HYDROCHLORIDE [Concomitant]
     Active Substance: TEMOCAPRIL HYDROCHLORIDE
     Indication: HYPERTENSION
     Dosage: 4MG/DAY
     Route: 048
     Dates: start: 20171202
  28. LIPACREON [Suspect]
     Active Substance: PANCRELIPASE
     Indication: PANCREATIC FAILURE
     Route: 048
     Dates: start: 20110907
  29. BAKTAR [Concomitant]
     Active Substance: SULFAMETHOXAZOLE\TRIMETHOPRIM
     Indication: PRODUCT USED FOR UNKNOWN INDICATION
     Route: 048
     Dates: start: 2002
  30. BAKTAR [Concomitant]
     Active Substance: SULFAMETHOXAZOLE\TRIMETHOPRIM
     Indication: UNEVALUABLE THERAPY
  31. SEPAMIT?R [Concomitant]
     Active Substance: NIFEDIPINE
     Indication: UNEVALUABLE THERAPY
  32. DIFLUCAN [Concomitant]
     Active Substance: FLUCONAZOLE
     Indication: UNEVALUABLE THERAPY

REACTIONS (6)
  - Renal impairment [Recovering/Resolving]
  - Enterobacter infection [Unknown]
  - Hypertension [Recovering/Resolving]
  - C-reactive protein increased [Recovering/Resolving]
  - Hyperkalaemia [Not Recovered/Not Resolved]
  - Pneumonia [Recovered/Resolved]

NARRATIVE: CASE EVENT DATE: 20130106
